FAERS Safety Report 6309871 (Version 3)
Quarter: 2014Q4

REPORT INFORMATION
  Report Type: Spontaneous
  Country: US (occurrence: US)
  Receive Date: 20070201
  Receipt Date: 20141205
  Transmission Date: 20150529
  Serious: No
  Sender: FDA-Public Use
  Company Number: 2006PV026947

PATIENT
  Age: 60 Year
  Sex: Female
  Weight: 115.67 kg

DRUGS (4)
  1. BYETTA [Suspect]
     Active Substance: EXENATIDE
     Indication: TYPE 2 DIABETES MELLITUS
     Dosage: INITIALLY 10MCG, 2/1/D
     Route: 058
     Dates: start: 200611
  2. ZELNORM [Concomitant]
     Active Substance: TEGASEROD MALEATE
  3. AVANDIA [Concomitant]
     Active Substance: ROSIGLITAZONE MALEATE
  4. METFORMIN HCL [Concomitant]
     Active Substance: METFORMIN HYDROCHLORIDE
     Indication: TYPE 2 DIABETES MELLITUS
     Route: 048

REACTIONS (7)
  - Blood glucose decreased [Recovered/Resolved]
  - Decreased appetite [Unknown]
  - Nausea [Recovering/Resolving]
  - Pruritus generalised [Recovered/Resolved]
  - Drug dose omission [Unknown]
  - Weight decreased [Unknown]
  - Dysgeusia [Not Recovered/Not Resolved]

NARRATIVE: CASE EVENT DATE: 2006
